FAERS Safety Report 7290186-6 (Version None)
Quarter: 2011Q1

REPORT INFORMATION
  Report Type: 
  Country: None (occurrence: None)
  Receive Date: 20110214
  Receipt Date: 20110202
  Transmission Date: 20110831
  Serious: Yes (Hospitalization, Other)
  Sender: FDA-Public Use
  Company Number: PHHY2010US81894

PATIENT
  Sex: Female
  Weight: 67 kg

DRUGS (12)
  1. RECLAST [Suspect]
     Indication: OSTEOPOROSIS
     Dosage: YEARLY
     Route: 042
     Dates: start: 20090601
  2. TOPROL-XL [Concomitant]
  3. ALLEGRA [Concomitant]
  4. VITAMIN D [Concomitant]
  5. PREDNISONE TAB [Concomitant]
     Dosage: 5MG
     Route: 048
  6. RECLAST [Suspect]
     Dosage: YEARLY
     Route: 042
     Dates: start: 20101019
  7. METHOTREXATE SODIUM [Concomitant]
     Dosage: 12.5MG PER WEEK
     Route: 048
  8. HYDROCHLOROTHIAZIDE [Concomitant]
     Route: 048
  9. CALCIUM [Concomitant]
     Dosage: UNK
  10. ORENCIA [Suspect]
     Dosage: UNK
     Dates: start: 20101105
  11. PEPCID [Concomitant]
  12. NORVASC [Concomitant]

REACTIONS (2)
  - HIP FRACTURE [None]
  - FALL [None]
